FAERS Safety Report 5509381-9 (Version None)
Quarter: 2007Q4

REPORT INFORMATION
  Report Type: 
  Country: None (occurrence: None)
  Receive Date: 20071107
  Receipt Date: 20071101
  Transmission Date: 20080405
  Serious: Yes (Hospitalization)
  Sender: FDA-Public Use
  Company Number: US-MERCK-0703USA04322

PATIENT
  Age: 71 Year
  Sex: Male

DRUGS (8)
  1. ZOCOR [Suspect]
     Indication: HYPERLIPIDAEMIA
     Route: 048
     Dates: start: 20001101
  2. ZOCOR [Suspect]
     Route: 048
     Dates: end: 20050911
  3. AZIMILIDE DIHYDROCHLORIDE [Concomitant]
     Indication: HYPERLIPIDAEMIA
     Route: 065
     Dates: end: 20050911
  4. GLIPIZIDE [Concomitant]
     Route: 065
  5. COREG [Concomitant]
     Indication: HYPERLIPIDAEMIA
     Route: 065
  6. DIOVAN [Concomitant]
     Route: 065
  7. ASPIRIN [Concomitant]
     Route: 065
  8. SYNTHROID [Concomitant]
     Route: 065
     Dates: start: 20020926

REACTIONS (2)
  - RENAL FAILURE [None]
  - RHABDOMYOLYSIS [None]
